FAERS Safety Report 24444869 (Version 1)
Quarter: 2024Q4

REPORT INFORMATION
  Report Type: Spontaneous
  Country: US (occurrence: US)
  Receive Date: 20241016
  Receipt Date: 20241016
  Transmission Date: 20250115
  Serious: No
  Sender: SANDOZ
  Company Number: US-002147023-NVSC2024US020678

PATIENT
  Age: 71 Year
  Sex: Female
  Weight: 61.2 kg

DRUGS (1)
  1. COMBIPATCH [Suspect]
     Active Substance: ESTRADIOL\NORETHINDRONE ACETATE
     Indication: Blood cholesterol increased
     Dosage: UNK (0.05/0.25 MG, EVERY 4 DAYS FOR ALTERNATE TWO WEEKS)
     Route: 062

REACTIONS (2)
  - Withdrawal bleed [Not Recovered/Not Resolved]
  - Off label use [Not Recovered/Not Resolved]
